FAERS Safety Report 11076033 (Version 1)
Quarter: 2015Q2

REPORT INFORMATION
  Report Type: Report from Study
  Country: JP (occurrence: JP)
  Receive Date: 20150429
  Receipt Date: 20150429
  Transmission Date: 20150821
  Serious: Yes (Other)
  Sender: FDA-Public Use
  Company Number: JP-009507513-1504JPN021531

PATIENT
  Age: 62 Year
  Sex: Male
  Weight: 60 kg

DRUGS (10)
  1. PEGINTRON [Suspect]
     Active Substance: PEGINTERFERON ALFA-2B
     Dosage: 25 MICROGRAM, QW
     Dates: start: 20140815
  2. PEGINTRON [Suspect]
     Active Substance: PEGINTERFERON ALFA-2B
     Dosage: 40 MICROGRAM, QW
     Dates: start: 20141002, end: 20141023
  3. SIMEPREVIR [Suspect]
     Active Substance: SIMEPREVIR
     Indication: CHRONIC HEPATITIS C
     Dosage: 100 MG, QD
     Route: 048
     Dates: start: 20140808, end: 20141009
  4. PEGINTRON [Suspect]
     Active Substance: PEGINTERFERON ALFA-2B
     Dosage: 50 MICROGRAM, QW
     Dates: start: 20141030
  5. PEGINTRON [Suspect]
     Active Substance: PEGINTERFERON ALFA-2B
     Indication: CHRONIC HEPATITIS C
     Dosage: 50 MICROGRAM, QW
     Dates: start: 20140808, end: 20140808
  6. RIBAVIRIN. [Suspect]
     Active Substance: RIBAVIRIN
     Indication: CHRONIC HEPATITIS C
     Dosage: 400 MG, QD
     Route: 048
     Dates: start: 20140808
  7. SLOW-K [Concomitant]
     Active Substance: POTASSIUM CHLORIDE
     Indication: HYPOKALAEMIA
     Dosage: 2400 MG 1 IN 1 DAY
     Route: 048
     Dates: start: 20141016
  8. POTASSIUM ASPARTATE [Concomitant]
     Active Substance: POTASSIUM ASPARTATE
     Indication: HYPOKALAEMIA
     Dosage: 1800 MG 1 IN 1 DAY
     Route: 048
     Dates: start: 20140915
  9. PEGINTRON [Suspect]
     Active Substance: PEGINTERFERON ALFA-2B
     Dosage: 30 MICROGRAM, QW
     Dates: start: 20140911, end: 20140925
  10. FAMOTIDINE. [Concomitant]
     Active Substance: FAMOTIDINE
     Indication: DUODENAL ULCER
     Dosage: 40 MG, QD
     Route: 048
     Dates: start: 20140204

REACTIONS (3)
  - Urticaria [Recovering/Resolving]
  - Liver disorder [Recovering/Resolving]
  - Neutrophil count decreased [Recovering/Resolving]

NARRATIVE: CASE EVENT DATE: 20140812
